FAERS Safety Report 5037924-0 (Version None)
Quarter: 2006Q2

REPORT INFORMATION
  Report Type: 
  Country: None (occurrence: None)
  Receive Date: 20060601
  Receipt Date: 20060201
  Transmission Date: 20061013
  Serious: No
  Sender: FDA-Public Use
  Company Number: 2006PV008001

PATIENT
  Age: 52 Year
  Sex: Female
  Weight: 81.1939 kg

DRUGS (8)
  1. BYETTA [Suspect]
     Indication: DIABETES MELLITUS NON-INSULIN-DEPENDENT
     Dosage: SEE IMAGE
     Route: 058
     Dates: start: 20050901
  2. BYETTA [Suspect]
     Indication: DIABETES MELLITUS NON-INSULIN-DEPENDENT
     Dosage: SEE IMAGE
     Route: 058
     Dates: start: 20051001
  3. LORTAB [Suspect]
     Indication: PAIN
     Dosage: PRN;PO
     Route: 048
     Dates: start: 20050901, end: 20051001
  4. LORTAB [Suspect]
     Indication: ROTATOR CUFF SYNDROME
     Dosage: PRN;PO
     Route: 048
     Dates: start: 20050901, end: 20051001
  5. METFORMIN [Concomitant]
  6. GLIMEPIRIDE [Concomitant]
  7. PRILOSEC [Concomitant]
  8. PREVACID [Concomitant]

REACTIONS (10)
  - ABDOMINAL DISTENSION [None]
  - ANOREXIA [None]
  - BLOOD GLUCOSE DECREASED [None]
  - INFREQUENT BOWEL MOVEMENTS [None]
  - INJECTION SITE BRUISING [None]
  - INJECTION SITE HAEMORRHAGE [None]
  - INJECTION SITE PAIN [None]
  - NAUSEA [None]
  - NERVOUSNESS [None]
  - VOMITING [None]
